FAERS Safety Report 6555538-8 (Version None)
Quarter: 2010Q1

REPORT INFORMATION
  Report Type: 
  Country: None (occurrence: None)
  Receive Date: 20100128
  Receipt Date: 20100125
  Transmission Date: 20100710
  Serious: Yes (Hospitalization)
  Sender: FDA-Public Use
  Company Number: JP-ROCHE-681934

PATIENT
  Age: 3 Year

DRUGS (1)
  1. TAMIFLU [Suspect]
     Indication: INFLUENZA
     Dosage: TAMIFLU DRY SYRUP 3%
     Route: 048
     Dates: start: 20100120, end: 20100121

REACTIONS (1)
  - ABNORMAL BEHAVIOUR [None]
